FAERS Safety Report 8199617-0 (Version None)
Quarter: 2012Q1

REPORT INFORMATION
  Report Type: 
  Country: None (occurrence: None)
  Receive Date: 20120310
  Receipt Date: 20120301
  Transmission Date: 20120608
  Serious: Yes (Other)
  Sender: FDA-Public Use
  Company Number: US-VERTEX PHARMACEUTICALS INC.-AE-2012-003060

PATIENT
  Sex: Male

DRUGS (3)
  1. RIBAVIRIN [Concomitant]
     Indication: HEPATITIS C
     Route: 048
     Dates: start: 20111111, end: 20120224
  2. INCIVEK [Suspect]
     Indication: HEPATITIS C
     Route: 048
     Dates: start: 20111111, end: 20120203
  3. PEGASYS [Concomitant]
     Indication: HEPATITIS C
     Route: 058
     Dates: start: 20111111, end: 20120224

REACTIONS (5)
  - GENERALISED OEDEMA [None]
  - HAEMOGLOBIN ABNORMAL [None]
  - RASH [None]
  - HEPATIC FAILURE [None]
  - TRANSFUSION [None]
